FAERS Safety Report 19211664 (Version 3)
Quarter: 2021Q2

REPORT INFORMATION
  Report Type: Spontaneous
  Country: US (occurrence: US)
  Receive Date: 20210504
  Receipt Date: 20210613
  Transmission Date: 20210717
  Serious: No
  Sender: FDA-Public Use
  Company Number: US-ASTRAZENECA-2021A345424

PATIENT
  Sex: Female
  Weight: 66.7 kg

DRUGS (2)
  1. BYDUREON [Suspect]
     Active Substance: EXENATIDE
     Indication: TYPE 2 DIABETES MELLITUS
     Route: 058
     Dates: start: 2019
  2. BYDUREON BCISE [Suspect]
     Active Substance: EXENATIDE
     Indication: TYPE 2 DIABETES MELLITUS
     Route: 058
     Dates: start: 20210411

REACTIONS (8)
  - Injection site pruritus [Unknown]
  - Injection site pain [Recovered/Resolved]
  - Device mechanical issue [Unknown]
  - Injection site mass [Recovering/Resolving]
  - Needle issue [Unknown]
  - Device malfunction [Unknown]
  - Injection site erythema [Unknown]
  - Product dose omission in error [Unknown]
